FAERS Safety Report 6434191-8 (Version None)
Quarter: 2009Q4

REPORT INFORMATION
  Report Type: 
  Country: None (occurrence: None)
  Receive Date: 20091110
  Receipt Date: 20090120
  Transmission Date: 20100525
  Serious: No
  Sender: FDA-Public Use
  Company Number: US-ASTRAZENECA-2009UW18423

PATIENT
  Sex: Female

DRUGS (10)
  1. PRILOSEC OTC [Suspect]
     Indication: DYSPEPSIA
     Dosage: 6 TABLET, UNK FREQ
     Route: 048
     Dates: start: 20090106, end: 20090106
  2. ENABLEX [Concomitant]
     Dosage: UNKNOWN
  3. HALCION [Concomitant]
     Dosage: UNKNOWN
  4. RESTORIL [Concomitant]
     Dosage: UNKNOWN
  5. PREMARIN [Concomitant]
     Dosage: UNKNOWN
  6. FENTANYL [Concomitant]
     Dosage: UNKNOWN
  7. DARVON [Concomitant]
     Dosage: UNKNOWN
  8. PHENERGAN HCL [Concomitant]
     Dosage: UNKNOWN
  9. SOMA [Concomitant]
     Dosage: UNKNOWN
  10. LASIX [Concomitant]
     Dosage: UNKNOWN

REACTIONS (4)
  - CONDITION AGGRAVATED [None]
  - DRUG INEFFECTIVE [None]
  - DYSPEPSIA [None]
  - INAPPROPRIATE SCHEDULE OF DRUG ADMINISTRATION [None]
